FAERS Safety Report 8560717-4 (Version None)
Quarter: 2012Q2

REPORT INFORMATION
  Report Type: 
  Country: None (occurrence: None)
  Receive Date: 20120418
  Receipt Date: 20090630
  Transmission Date: 20120825
  Serious: Yes (Other)
  Sender: FDA-Public Use
  Company Number: PHEH2009US06920

PATIENT
  Sex: Male

DRUGS (7)
  1. CALCIUM CARBONATE [Concomitant]
  2. COQ10 (UBIDECARENONE) [Concomitant]
  3. BENADRYL [Concomitant]
  4. ZOLOFT [Concomitant]
  5. PREVACID [Concomitant]
  6. ENABLEX [Suspect]
  7. ALLEGRA [Concomitant]

REACTIONS (3)
  - DRUG INTERACTION [None]
  - THROAT TIGHTNESS [None]
  - HYPERSENSITIVITY [None]
